FAERS Safety Report 5944177-5 (Version None)
Quarter: 2008Q4

REPORT INFORMATION
  Report Type: 
  Country: None (occurrence: None)
  Receive Date: 20081104
  Receipt Date: 20081020
  Transmission Date: 20090506
  Serious: Yes (Hospitalization)
  Sender: FDA-Public Use
  Company Number: 035499

PATIENT
  Age: 16 Year
  Sex: Female

DRUGS (4)
  1. ADDERALL 10 [Suspect]
     Indication: ATTENTION DEFICIT/HYPERACTIVITY DISORDER
     Dosage: 10 MG QD ORAL
     Route: 048
     Dates: start: 20000101
  2. PAXIL [Concomitant]
  3. ALBUTEROL [Concomitant]
  4. PULMICORT [Concomitant]

REACTIONS (16)
  - ATRIAL SEPTAL DEFECT [None]
  - BREATH SOUNDS ABNORMAL [None]
  - CEREBRAL ARTERY OCCLUSION [None]
  - CEREBROVASCULAR ACCIDENT [None]
  - DYSPHAGIA [None]
  - EXTENSOR PLANTAR RESPONSE [None]
  - EYELID FUNCTION DISORDER [None]
  - FACIAL PALSY [None]
  - FALL [None]
  - HEAD INJURY [None]
  - HEADACHE [None]
  - HEMIPARESIS [None]
  - NEUROLOGICAL EXAMINATION ABNORMAL [None]
  - SENSORY LOSS [None]
  - SKIN LACERATION [None]
  - WHEEZING [None]
